FAERS Safety Report 10272807 (Version 1)
Quarter: 2014Q3

REPORT INFORMATION
  Report Type: Spontaneous
  Country: US (occurrence: US)
  Receive Date: 20140702
  Receipt Date: 20140702
  Transmission Date: 20150326
  Serious: Yes (Hospitalization, Other)
  Sender: FDA-Public Use
  Company Number: US-JNJFOC-20140609971

PATIENT
  Sex: Female
  Weight: 77.11 kg

DRUGS (4)
  1. CYMBALTA [Concomitant]
     Active Substance: DULOXETINE HYDROCHLORIDE
     Indication: ANTIDEPRESSANT THERAPY
     Route: 048
  2. TOPAMAX [Suspect]
     Active Substance: TOPIRAMATE
     Indication: ELEVATED MOOD
     Route: 048
  3. POTASSIUM GLUCONATE [Suspect]
     Active Substance: POTASSIUM GLUCONATE
     Indication: BLOOD POTASSIUM DECREASED
     Route: 048
     Dates: end: 201405
  4. INVOKANA [Concomitant]
     Active Substance: CANAGLIFLOZIN
     Indication: TYPE 2 DIABETES MELLITUS
     Route: 048

REACTIONS (12)
  - Cartilage injury [Recovered/Resolved]
  - Blood cholesterol increased [Unknown]
  - Hypokalaemia [Not Recovered/Not Resolved]
  - Asthenia [Recovering/Resolving]
  - Hypothyroidism [Not Recovered/Not Resolved]
  - Alopecia [Recovering/Resolving]
  - Malaise [Recovered/Resolved]
  - Vulvovaginal mycotic infection [Recovering/Resolving]
  - Off label use [Unknown]
  - Type 2 diabetes mellitus [Unknown]
  - Vitamin A deficiency [Unknown]
  - Depression [Unknown]

NARRATIVE: CASE EVENT DATE: 2001
